FAERS Safety Report 7176016 (Version 2)
Quarter: 2017Q3

REPORT INFORMATION
  Report Type: Spontaneous
  Country: JP (occurrence: JP)
  Receive Date: 20091113
  Receipt Date: 20170711
  Transmission Date: 20171128
  Serious: Yes (Hospitalization)
  Sender: FDA-Public Use
  Company Number: PHHY2009JP48360

PATIENT
  Age: 56 Year
  Sex: Male

DRUGS (5)
  1. MIKELAN LA 2% [Suspect]
     Active Substance: CARTEOLOL HYDROCHLORIDE
     Indication: NORMAL TENSION GLAUCOMA
     Dosage: 1 GTT OU, QD
     Route: 047
     Dates: start: 20080123, end: 20091023
  2. MIKELAN LA 2% [Suspect]
     Active Substance: CARTEOLOL HYDROCHLORIDE
     Dosage: 1 GTT OU, QD
     Route: 047
     Dates: end: 20091023
  3. XALATAN [Concomitant]
     Active Substance: LATANOPROST
     Indication: NORMAL TENSION GLAUCOMA
     Dosage: 1 GTT OU/DAY
     Dates: start: 20010810, end: 20091023
  4. SODIUM HYALURONATE [Concomitant]
     Active Substance: HYALURONATE SODIUM
     Dosage: UNK
     Dates: start: 20080530, end: 20080915
  5. AZOPT [Concomitant]
     Active Substance: BRINZOLAMIDE
     Dosage: UNK
     Dates: start: 20081229, end: 20091023

REACTIONS (1)
  - Atrial fibrillation [Unknown]

NARRATIVE: CASE EVENT DATE: 20080527
